FAERS Safety Report 5527369-9 (Version None)
Quarter: 2007Q4

REPORT INFORMATION
  Report Type: 
  Country: None (occurrence: None)
  Receive Date: 20071123
  Receipt Date: 20071112
  Transmission Date: 20080405
  Serious: Yes (Other)
  Sender: FDA-Public Use
  Company Number: 2007S1008346

PATIENT
  Age: 41 Year
  Sex: Female
  Weight: 80.2867 kg

DRUGS (8)
  1. PHOSPHOSODA UNFLAVORED [Suspect]
     Indication: COLONOSCOPY
     Dosage: 15 ML; X1; PO
     Route: 048
     Dates: start: 20071112, end: 20071112
  2. ATENOLOL [Concomitant]
  3. ALLEGRA [Concomitant]
  4. ZANTAC [Concomitant]
  5. SINGULAIR [Concomitant]
  6. PHENERGAN HCL [Concomitant]
  7. BENADRYL [Concomitant]
  8. ALBUTEROL [Concomitant]

REACTIONS (8)
  - BLOOD PRESSURE INCREASED [None]
  - CHEST PAIN [None]
  - DIARRHOEA [None]
  - DYSPNOEA [None]
  - HEART RATE INCREASED [None]
  - REBOUND EFFECT [None]
  - URTICARIA [None]
  - VOMITING [None]
